FAERS Safety Report 4709736-6 (Version None)
Quarter: 2005Q3

REPORT INFORMATION
  Report Type: 
  Country: None (occurrence: None)
  Receive Date: 20050707
  Receipt Date: 20050616
  Transmission Date: 20060218
  Serious: Yes (Hospitalization, Other)
  Sender: FDA-Public Use
  Company Number: USA0506100668

PATIENT
  Age: 82 Year
  Sex: Male
  Weight: 73 kg

DRUGS (8)
  1. HUMALOG [Suspect]
     Indication: DIABETES MELLITUS
     Dates: start: 19970101
  2. COUMADIN [Concomitant]
  3. FUROSEMIDE [Concomitant]
  4. LANOXIN [Concomitant]
  5. TOPROL-XL [Concomitant]
  6. AVALIDE [Concomitant]
  7. INSULIN NOVO (INSULIN) [Concomitant]
  8. LANTUS [Concomitant]

REACTIONS (8)
  - BLOOD GLUCOSE FLUCTUATION [None]
  - CORONARY ARTERY DISEASE [None]
  - MALAISE [None]
  - PHARMACEUTICAL PRODUCT COMPLAINT [None]
  - RASH MACULAR [None]
  - SKIN HAEMORRHAGE [None]
  - TREATMENT NONCOMPLIANCE [None]
  - VARICOSE VEIN [None]
